FAERS Safety Report 19470166 (Version 3)
Quarter: 2021Q4

REPORT INFORMATION
  Report Type: Report from Study
  Country: BR (occurrence: BR)
  Receive Date: 20210628
  Receipt Date: 20211214
  Transmission Date: 20220303
  Serious: Yes (Other)
  Sender: FDA-Public Use
  Company Number: NVSC2021BR141881

PATIENT
  Age: 73 Year
  Sex: Male

DRUGS (2)
  1. VOTRIENT [Suspect]
     Active Substance: PAZOPANIB HYDROCHLORIDE
     Indication: Renal cancer
     Dosage: UNK
     Route: 065
     Dates: start: 20200901
  2. VOTRIENT [Suspect]
     Active Substance: PAZOPANIB HYDROCHLORIDE
     Dosage: UNK
     Route: 065

REACTIONS (10)
  - Drug dependence [Unknown]
  - Spinal pain [Not Recovered/Not Resolved]
  - Pain [Recovering/Resolving]
  - Product availability issue [Unknown]
  - Nervousness [Unknown]
  - Tension [Unknown]
  - Body temperature abnormal [Unknown]
  - Feeling abnormal [Unknown]
  - Abdominal pain upper [Unknown]
  - Vomiting [Unknown]

NARRATIVE: CASE EVENT DATE: 20210501
